FAERS Safety Report 16492559 (Version 1)
Quarter: 2019Q2

REPORT INFORMATION
  Report Type: Spontaneous
  Country: US (occurrence: US)
  Receive Date: 20190520
  Receipt Date: 20190520
  Transmission Date: 20190711
  Serious: Yes (Hospitalization, Other)
  Sender: FDA-Public Use
  Company Number: None

PATIENT
  Age: 28 Year
  Sex: Female

DRUGS (9)
  1. DOXYCYCMONO CAP [Concomitant]
  2. PREDNISONE TAB [Concomitant]
     Active Substance: PREDNISONE
  3. ALBUTERNOL NEB [Concomitant]
  4. BUDESONIDER CAP [Concomitant]
  5. HYDROCO/APAP TAB [Concomitant]
  6. STELARA [Suspect]
     Active Substance: USTEKINUMAB
     Indication: CROHN^S DISEASE
     Dosage: ?          OTHER FREQUENCY:Q 8 WEEKS;?
     Route: 058
     Dates: start: 20180919
  7. CYANOCOBALA [Concomitant]
  8. ONDANSETRON TAB [Concomitant]
  9. METRONIDAZOL TAB [Concomitant]

REACTIONS (1)
  - Colitis [None]

NARRATIVE: CASE EVENT DATE: 20190516
